FAERS Safety Report 8352608-9 (Version None)
Quarter: 2012Q2

REPORT INFORMATION
  Report Type: 
  Country: None (occurrence: None)
  Receive Date: 20120509
  Receipt Date: 20120502
  Transmission Date: 20120825
  Serious: Yes (Other)
  Sender: FDA-Public Use
  Company Number: 2012SP022478

PATIENT

DRUGS (4)
  1. ENZASTAURIN (ENZASTAURIN) [Suspect]
     Indication: NEOPLASM RECURRENCE
     Dosage: 250;500 MG, QD,BID
  2. ENZASTAURIN (ENZASTAURIN) [Suspect]
     Indication: GLIOBLASTOMA
     Dosage: 250;500 MG, QD,BID
  3. TEMOZOLOMIDE [Suspect]
     Indication: GLIOBLASTOMA
     Dosage: 200 MG/M2, QD
  4. TEMOZOLOMIDE [Suspect]
     Indication: NEOPLASM RECURRENCE
     Dosage: 200 MG/M2, QD

REACTIONS (1)
  - INTRACRANIAL PRESSURE INCREASED [None]
